FAERS Safety Report 8430273-X (Version None)
Quarter: 2012Q2

REPORT INFORMATION
  Report Type: 
  Country: None (occurrence: None)
  Receive Date: 20120323
  Receipt Date: 20110825
  Transmission Date: 20120825
  Serious: Yes (Other)
  Sender: FDA-Public Use
  Company Number: 163-21880-11083205

PATIENT
  Age: 73 Year
  Sex: Male

DRUGS (10)
  1. SENNA (SENNA) [Concomitant]
  2. TAMSULOSIN HCL (TAMSULOSIN HYDROCHLORIDE) [Concomitant]
  3. SYNTHROID [Concomitant]
  4. LENALIDOMIDE [Suspect]
     Indication: MYELODYSPLASTIC SYNDROME
     Dosage: 10 MG, 28 CAPS, PO
     Route: 048
     Dates: start: 20110811
  5. DETROL LA [Concomitant]
  6. ZOFRAN [Concomitant]
  7. XANAX [Concomitant]
  8. MUCINEX (GUAIFENESIN) (NASAL DROPS (INCLUDING NASAL SPRAY) [Concomitant]
  9. BLOOD TRANSFUSION (BLOOD AND RELATED PRODUCTS) [Concomitant]
  10. ACETAMINOPHEN [Concomitant]

REACTIONS (3)
  - WHITE BLOOD CELL COUNT DECREASED [None]
  - PLATELET COUNT DECREASED [None]
  - RED BLOOD CELL COUNT DECREASED [None]
